FAERS Safety Report 7031504-3 (Version None)
Quarter: 2010Q4

REPORT INFORMATION
  Report Type: 
  Country: None (occurrence: None)
  Receive Date: 20101005
  Receipt Date: 20101005
  Transmission Date: 20110411
  Serious: Yes (Life-Threatening, Hospitalization)
  Sender: FDA-Public Use
  Company Number: None

PATIENT
  Age: 61 Year
  Sex: Male

DRUGS (2)
  1. ESMOLOL HCL [Suspect]
     Indication: ATRIAL FIBRILLATION
     Dosage: 10 MG ONCE IV
     Route: 042
     Dates: start: 20101001, end: 20101001
  2. GLYCOPYRROLATE [Suspect]
     Indication: ATRIAL FIBRILLATION
     Dosage: 0.2 MG ONCE IV
     Route: 042
     Dates: start: 20101001, end: 20101001

REACTIONS (2)
  - CARDIAC ARREST [None]
  - TACHYCARDIA [None]
